FAERS Safety Report 8450806-7 (Version None)
Quarter: 2012Q2

REPORT INFORMATION
  Report Type: 
  Country: None (occurrence: None)
  Receive Date: 20120620
  Receipt Date: 20120606
  Transmission Date: 20120825
  Serious: Yes (Hospitalization)
  Sender: FDA-Public Use
  Company Number: US-BAYER-2012-057703

PATIENT
  Age: 17 Year
  Sex: Female
  Weight: 76.2 kg

DRUGS (12)
  1. RANITIDINE [Concomitant]
  2. DROSPIRENONE AND ETHINYL ESTRADIOL [Suspect]
  3. DEPO-PROVERA [Concomitant]
  4. SULFAMETHOXAZOLE AND TRIMETHOPRIM [Concomitant]
  5. PREDNISONE TAB [Concomitant]
     Dosage: 60 MG, QD
     Route: 048
  6. PROZAC [Concomitant]
  7. LUPRON [Concomitant]
     Indication: OVARIAN FAILURE
     Dosage: 3.75 MG, Q1MON
     Route: 030
  8. EXCEDRIN (MIGRAINE) [Concomitant]
     Indication: MIGRAINE
  9. CALCIUM CARBONATE [Concomitant]
  10. ERGOCALCIFEROL [Concomitant]
  11. YAZ [Suspect]
     Indication: CONTRACEPTION
  12. ASPIRIN [Concomitant]
     Dosage: 1 PER DAY

REACTIONS (1)
  - VASCULITIS CEREBRAL [None]
